FAERS Safety Report 15903595 (Version 2)
Quarter: 2019Q1

REPORT INFORMATION
  Report Type: Spontaneous
  Country: US (occurrence: US)
  Receive Date: 20190203
  Receipt Date: 20190222
  Transmission Date: 20190417
  Serious: No
  Sender: FDA-Public Use
  Company Number: US-TEVA-2019-US-1006070

PATIENT
  Sex: Female

DRUGS (1)
  1. OXYTROL FOR WOMEN [Suspect]
     Active Substance: OXYBUTYNIN
     Indication: HYPERTONIC BLADDER
     Dosage: ONCE EVERY 4 DAYS
     Route: 062
     Dates: start: 20190104

REACTIONS (3)
  - Urinary incontinence [Unknown]
  - Product residue present [Recovered/Resolved]
  - Wrong technique in product usage process [Unknown]
